FAERS Safety Report 12358385 (Version 1)
Quarter: 2016Q2

REPORT INFORMATION
  Report Type: Spontaneous
  Country: US (occurrence: None)
  Receive Date: 20160511
  Receipt Date: 20160511
  Transmission Date: 20160815
  Serious: Yes (Other)
  Sender: FDA-Public Use
  Company Number: None

PATIENT
  Age: 56 Year
  Sex: Female
  Weight: 90.77 kg

DRUGS (15)
  1. NOVLIN [Concomitant]
  2. LANTUS [Concomitant]
     Active Substance: INSULIN GLARGINE
  3. PROZAC [Concomitant]
     Active Substance: FLUOXETINE HYDROCHLORIDE
  4. LISINOPRIL. [Concomitant]
     Active Substance: LISINOPRIL
  5. RIFRAMPIN 300MG CAPS - GENERIC FOR RIFADIN 300MG [Suspect]
     Active Substance: RIFAMPIN
     Indication: WOUND INFECTION STAPHYLOCOCCAL
     Dosage: 2 PILLS TWICE ORALLY
     Route: 048
     Dates: start: 20160219, end: 20160221
  6. CLONIDINE HCL [Concomitant]
     Active Substance: CLONIDINE HYDROCHLORIDE
  7. LYRICA [Concomitant]
     Active Substance: PREGABALIN
  8. PHENERGAN [Concomitant]
     Active Substance: PROMETHAZINE HYDROCHLORIDE
  9. ACYLOVIR (ACICLOVIR) [Concomitant]
     Active Substance: ACYCLOVIR
  10. VOLTAREN [Concomitant]
     Active Substance: DICLOFENAC SODIUM
  11. MORPHINE [Concomitant]
     Active Substance: MORPHINE
  12. VALIUM [Concomitant]
     Active Substance: DIAZEPAM
  13. ALBUTEROL. [Concomitant]
     Active Substance: ALBUTEROL
  14. NORCO [Concomitant]
     Active Substance: ACETAMINOPHEN\HYDROCODONE BITARTRATE
  15. LEVOTHYROXINE. [Concomitant]
     Active Substance: LEVOTHYROXINE

REACTIONS (11)
  - Lip swelling [None]
  - Dyspnoea [None]
  - Dizziness [None]
  - Oral pruritus [None]
  - Hypoaesthesia oral [None]
  - Pruritus [None]
  - Formication [None]
  - Tremor [None]
  - Drug interaction [None]
  - Palpitations [None]
  - Gingival pruritus [None]

NARRATIVE: CASE EVENT DATE: 20160219
